FAERS Safety Report 20711121 (Version 1)
Quarter: 2022Q2

REPORT INFORMATION
  Report Type: Spontaneous
  Country: None (occurrence: A1)
  Receive Date: 20220414
  Receipt Date: 20220414
  Transmission Date: 20220721
  Serious: Yes (Hospitalization)
  Sender: FDA-Public Use
  Company Number: A1-Acella Pharmaceuticals, LLC-2127773

PATIENT
  Age: 82 Year
  Sex: Male

DRUGS (2)
  1. DUTASTERIDE [Suspect]
     Active Substance: DUTASTERIDE
     Indication: Product used for unknown indication
     Route: 065
  2. BICALUTAMIDE [Concomitant]
     Active Substance: BICALUTAMIDE

REACTIONS (5)
  - Bladder transitional cell carcinoma [Unknown]
  - Prostate cancer [Unknown]
  - Bladder cancer [Unknown]
  - Radical cystectomy [Unknown]
  - Urethral discharge [Unknown]
